FAERS Safety Report 19453702 (Version 1)
Quarter: 2021Q2

REPORT INFORMATION
  Report Type: Spontaneous
  Country: US (occurrence: US)
  Receive Date: 20210623
  Receipt Date: 20210623
  Transmission Date: 20210717
  Serious: Yes (Other)
  Sender: FDA-Public Use
  Company Number: US-PFIZER INC-2021678799

PATIENT
  Age: 73 Year
  Sex: Male
  Weight: 88.44 kg

DRUGS (1)
  1. XELJANZ XR [Suspect]
     Active Substance: TOFACITINIB CITRATE
     Indication: ARTHRITIS
     Dosage: 11 MG, 1X/DAY
     Dates: start: 20200901

REACTIONS (8)
  - Constipation [Unknown]
  - Haemorrhoids [Unknown]
  - Pyrexia [Unknown]
  - Asthenia [Unknown]
  - Feeling abnormal [Unknown]
  - Haematochezia [Unknown]
  - Viral infection [Unknown]
  - Illness [Unknown]

NARRATIVE: CASE EVENT DATE: 20210607
